FAERS Safety Report 9458859 (Version 1)
Quarter: 2013Q3

REPORT INFORMATION
  Report Type: Spontaneous
  Country: JP (occurrence: JP)
  Receive Date: 20130814
  Receipt Date: 20130814
  Transmission Date: 20140515
  Serious: Yes (Other)
  Sender: FDA-Public Use
  Company Number: JP-PFIZER INC-2013235741

PATIENT
  Age: 78 Year
  Sex: Male

DRUGS (3)
  1. AMLODIN [Suspect]
     Dosage: 2.5 MG, 1X/DAY
  2. THEOPHYLLINE [Concomitant]
     Dosage: UNK
  3. ACETAMINOPHEN/TRAMADOL HYDROCHLORIDE [Concomitant]
     Dosage: UNK

REACTIONS (1)
  - Electrocardiogram QT prolonged [Unknown]
